FAERS Safety Report 9260244 (Version 2)
Quarter: 2015Q1

REPORT INFORMATION
  Report Type: Spontaneous
  Country: US (occurrence: US)
  Receive Date: 20130429
  Receipt Date: 20150115
  Transmission Date: 20150721
  Serious: No
  Sender: FDA-Public Use
  Company Number: US-PFIZER INC-2013128409

PATIENT
  Age: 62 Year
  Sex: Female

DRUGS (7)
  1. DOXYCYCLINE HYCLATE. [Suspect]
     Active Substance: DOXYCYCLINE HYCLATE
     Dosage: UNK
  2. MOTRIN [Suspect]
     Active Substance: IBUPROFEN
     Dosage: UNK
  3. BACTRIM [Suspect]
     Active Substance: SULFAMETHOXAZOLE\TRIMETHOPRIM
     Dosage: UNK
  4. KEFLEX [Suspect]
     Active Substance: CEPHALEXIN
     Dosage: UNK
  5. CECLOR [Suspect]
     Active Substance: CEFACLOR
     Dosage: UNK
  6. POLYMYCIN [Suspect]
     Active Substance: POLYMYXIN
     Dosage: UNK
  7. POLYSPORIN [Suspect]
     Active Substance: BACITRACIN ZINC\POLYMYXIN B SULFATE
     Dosage: UNK

REACTIONS (3)
  - Rash [Unknown]
  - Blister [Unknown]
  - Drug hypersensitivity [Unknown]
